FAERS Safety Report 8155136-9 (Version None)
Quarter: 2012Q1

REPORT INFORMATION
  Report Type: 
  Country: None (occurrence: None)
  Receive Date: 20120221
  Receipt Date: 20120210
  Transmission Date: 20120608
  Serious: No
  Sender: FDA-Public Use
  Company Number: US-B.I. PHARMACEUTICALS,INC./RIDGEFIELD-2012-BP-02659BP

PATIENT
  Age: 69 Year
  Sex: Female

DRUGS (4)
  1. LIPITOR [Concomitant]
     Indication: BLOOD CHOLESTEROL INCREASED
  2. PRILOSEC [Concomitant]
     Indication: GASTROOESOPHAGEAL REFLUX DISEASE
  3. MICARDIS [Suspect]
     Indication: HYPERTENSION
     Dosage: 40 MG
     Route: 048
     Dates: start: 20070101
  4. ACTONEL [Concomitant]
     Indication: BONE DENSITY DECREASED

REACTIONS (5)
  - HYPOTENSION [None]
  - ASTHENIA [None]
  - INFLUENZA [None]
  - VOMITING [None]
  - DIARRHOEA [None]
